FAERS Safety Report 6306824-8 (Version None)
Quarter: 2009Q3

REPORT INFORMATION
  Report Type: 
  Country: None (occurrence: None)
  Receive Date: 20090810
  Receipt Date: 20090731
  Transmission Date: 20100115
  Serious: Yes (Hospitalization)
  Sender: FDA-Public Use
  Company Number: CAP09000187

PATIENT
  Age: 66 Year
  Sex: Female

DRUGS (1)
  1. ACTONEL [Suspect]
     Indication: OSTEOPOROSIS
     Dosage: 335 MG ONCE WEEKLY, ORAL
     Route: 048

REACTIONS (4)
  - BLOOD PRESSURE ABNORMAL [None]
  - CLOSTRIDIAL INFECTION [None]
  - SINUSITIS [None]
  - THROMBOSIS [None]
